FAERS Safety Report 4817345-3 (Version None)
Quarter: 2005Q3

REPORT INFORMATION
  Report Type: 
  Country: None (occurrence: None)
  Receive Date: 20050929
  Receipt Date: 20050713
  Transmission Date: 20060218
  Serious: Yes (Hospitalization)
  Sender: FDA-Public Use
  Company Number: 05P-163-0304050-00

PATIENT
  Age: 62 Year
  Sex: Male
  Weight: 71.6683 kg

DRUGS (15)
  1. HUMIRA [Suspect]
     Indication: RHEUMATOID ARTHRITIS
     Dosage: 40 MG, 1 IN 2 WK, SUBCUTANEOUS; 40 MG, 1 IN 2 WK, SUBCUTANEOUS
     Route: 058
     Dates: start: 20040101, end: 20050201
  2. HUMIRA [Suspect]
     Indication: RHEUMATOID ARTHRITIS
     Dosage: 40 MG, 1 IN 2 WK, SUBCUTANEOUS; 40 MG, 1 IN 2 WK, SUBCUTANEOUS
     Route: 058
     Dates: start: 20050501, end: 20050619
  3. METOPROLOL SUCCINATE [Concomitant]
  4. HYDROXYCHLOROQUINE PHOSPHATE [Concomitant]
  5. PIROXICAM [Concomitant]
  6. FOLIC ACID [Concomitant]
  7. VICODIN [Concomitant]
  8. LEKOVIT CA [Concomitant]
  9. PREDNISONE [Concomitant]
  10. NICOTINIC ACID [Concomitant]
  11. TOCOPHEROL CONCENTRATE CAP [Concomitant]
  12. POTASSIUM [Concomitant]
  13. ASPIRIN [Concomitant]
  14. ASCORBIC ACID [Concomitant]
  15. HYDROXYZINE HYDROCHLORIDE [Concomitant]

REACTIONS (4)
  - ARTHRITIS [None]
  - CONDITION AGGRAVATED [None]
  - PNEUMONIA [None]
  - SINUSITIS [None]
